FAERS Safety Report 5013856-9 (Version None)
Quarter: 2006Q2

REPORT INFORMATION
  Report Type: 
  Country: None (occurrence: None)
  Receive Date: 20060525
  Receipt Date: 20060512
  Transmission Date: 20061013
  Serious: Yes (Hospitalization)
  Sender: FDA-Public Use
  Company Number: 2006063408

PATIENT
  Age: 60 Year
  Sex: Female
  Weight: 65 kg

DRUGS (5)
  1. LINEZOLID [Suspect]
     Indication: MYOSITIS
     Dosage: 1200 MG (600 MG, 2 IN 1 D), INTRAVENOUS
     Route: 042
     Dates: start: 20060101, end: 20060101
  2. ADVIL [Concomitant]
  3. TOLPERISONE [Concomitant]
  4. PRESTARIUM (PERINDOPRIL) [Concomitant]
  5. CAPTOPRIL [Concomitant]

REACTIONS (1)
  - SCOTOMA [None]
